FAERS Safety Report 4543055-6 (Version None)
Quarter: 2004Q4

REPORT INFORMATION
  Report Type: 
  Country: None (occurrence: None)
  Receive Date: 20041229
  Receipt Date: 20041229
  Transmission Date: 20050328
  Serious: No
  Sender: FDA-Public Use
  Company Number: None

PATIENT
  Age: 33 Year
  Sex: Female
  Weight: 51.2565 kg

DRUGS (6)
  1. HUMIRA [Suspect]
     Indication: RHEUMATOID ARTHRITIS
     Dosage: 40 MG   WEEKLY  SUBCUTANEO
     Route: 058
     Dates: start: 20030607, end: 20040108
  2. REMICADE [Suspect]
     Dosage: 400 MG    EVERY 8 WEEKS   INTRAVENOU
     Route: 042
     Dates: start: 20020918, end: 20030607
  3. AZULFIDINE [Concomitant]
  4. PREDNISONE [Concomitant]
  5. METHOTREXATE [Concomitant]
  6. CELEBREX [Concomitant]

REACTIONS (1)
  - BREAST CANCER [None]
